FAERS Safety Report 8217853-1 (Version None)
Quarter: 2012Q1

REPORT INFORMATION
  Report Type: 
  Country: None (occurrence: None)
  Receive Date: 20120315
  Receipt Date: 20120301
  Transmission Date: 20120608
  Serious: Yes (Hospitalization)
  Sender: FDA-Public Use
  Company Number: 2012PL000043

PATIENT
  Age: 63 Year
  Sex: Female

DRUGS (3)
  1. ALLOPURINOL [Suspect]
     Indication: PRODUCT USED FOR UNKNOWN INDICATION
     Dosage: 200 MG; QD;
  2. ASPIRIN [Concomitant]
  3. ANAGRELIDE HCL [Concomitant]

REACTIONS (20)
  - RESPIRATORY DISTRESS [None]
  - PARAINFLUENZAE VIRUS INFECTION [None]
  - STEVENS-JOHNSON SYNDROME [None]
  - CONJUNCTIVITIS [None]
  - ASPARTATE AMINOTRANSFERASE INCREASED [None]
  - ALANINE AMINOTRANSFERASE INCREASED [None]
  - PNEUMOCYSTIS JIROVECI INFECTION [None]
  - SKIN EXFOLIATION [None]
  - ASPERGILLOSIS [None]
  - BLISTER [None]
  - CYTOMEGALOVIRUS INFECTION [None]
  - TOXIC EPIDERMAL NECROLYSIS [None]
  - DYSPNOEA [None]
  - ULCER [None]
  - INTERSTITIAL LUNG DISEASE [None]
  - INFECTION [None]
  - MUCOSAL EROSION [None]
  - RASH ERYTHEMATOUS [None]
  - HYPERAEMIA [None]
  - COUGH [None]
